FAERS Safety Report 7749842-5 (Version None)
Quarter: 2011Q3

REPORT INFORMATION
  Report Type: 
  Country: None (occurrence: None)
  Receive Date: 20110914
  Receipt Date: 20110912
  Transmission Date: 20111222
  Serious: Yes (Hospitalization)
  Sender: FDA-Public Use
  Company Number: FR-ROCHE-802009

PATIENT
  Sex: Male

DRUGS (10)
  1. BUMETANIDE [Concomitant]
  2. POTASSIUM CHLORIDE [Concomitant]
  3. DIGOXIN [Concomitant]
     Dosage: DRUG NAME: HEMIGOXINE
  4. ALFUZOSIN HCL [Concomitant]
  5. NITROGLYCERIN [Concomitant]
  6. ACETAMINOPHEN [Concomitant]
  7. PEGASYS [Suspect]
     Route: 065
     Dates: start: 20110401, end: 20110829
  8. PREVISCAN [Concomitant]
  9. FOSINOPRIL SODIUM [Concomitant]
  10. PROSCAR [Concomitant]

REACTIONS (1)
  - CARDIAC FAILURE [None]
